FAERS Safety Report 7799725-X (Version None)
Quarter: 2011Q4

REPORT INFORMATION
  Report Type: 
  Country: None (occurrence: None)
  Receive Date: 20111004
  Receipt Date: 20110921
  Transmission Date: 20120403
  Serious: Yes (Life-Threatening)
  Sender: FDA-Public Use
  Company Number: TCI2011A04143

PATIENT
  Age: 81 Year
  Sex: Male

DRUGS (5)
  1. LIVALO [Suspect]
     Indication: HYPERLIPIDAEMIA
     Dosage: 1 MG (1 MG, 1 IN 1 D), PER ORAL
     Route: 048
     Dates: start: 20060624
  2. MAGMITT (MAGNESIUM OXIDE) [Suspect]
     Indication: CONSTIPATION
     Dosage: 1500 MG (500 MG, 3 IN 1 D), PER ORAL
     Route: 048
     Dates: start: 20060624
  3. MICARDIS [Suspect]
     Indication: HYPERTENSION
     Dosage: 40 MG (40 MG, 1 IN 1 D), PER ORAL
     Route: 048
     Dates: start: 20060624
  4. ACTOS [Suspect]
     Indication: BLOOD GLUCOSE ABNORMAL
     Dosage: 15 MG (15 MG, 1 IN 1 D), PER ORAL;
     Dates: start: 20060624, end: 20080516
  5. ACTOS [Suspect]
     Indication: BLOOD GLUCOSE ABNORMAL
     Dosage: 15 MG (15 MG, 1 IN 1 D), PER ORAL;
     Dates: start: 20081010, end: 20100821

REACTIONS (1)
  - BLADDER CANCER [None]
